FAERS Safety Report 9159838 (Version 1)
Quarter: 2013Q1

REPORT INFORMATION
  Report Type: Spontaneous
  Country: US (occurrence: None)
  Receive Date: 20130212
  Receipt Date: 20130212
  Transmission Date: 20140127
  Serious: Yes (Other)
  Sender: FDA-Public Use
  Company Number: 2013P1001993

PATIENT
  Age: 68 Year
  Sex: Female

DRUGS (18)
  1. DIGOXIN [Suspect]
     Dates: start: 20120815, end: 201209
  2. DIGOXIN [Suspect]
     Dates: start: 20120815, end: 201209
  3. DIGOXIN [Suspect]
     Dates: start: 20120815, end: 201209
  4. DIGOXIN [Suspect]
     Dates: start: 20120815, end: 201209
  5. PROPAFENONE HYDROCHLORIDE [Suspect]
     Route: 048
     Dates: start: 20120815, end: 20120821
  6. CARVEDILOL [Suspect]
     Route: 048
     Dates: start: 20120912, end: 20120916
  7. WARFARIN SODIUM [Suspect]
     Dates: start: 20120815
  8. WARFARIN SODIUM [Suspect]
     Dates: start: 20120815
  9. WARFARIN SODIUM [Suspect]
     Dates: start: 20120815
  10. WARFARIN SODIUM [Suspect]
     Dates: start: 20120815
  11. LISINOPRIL [Concomitant]
  12. PRAVASTATIN [Concomitant]
  13. TORASEMIDE [Concomitant]
  14. HYDROCHLOROTHIAZIDE [Concomitant]
  15. CELECOXIB [Concomitant]
  16. ASPIRIN [Concomitant]
  17. OMEPRAZOLE [Concomitant]
  18. PRAVASTATIN [Concomitant]

REACTIONS (6)
  - Atrial fibrillation [None]
  - Renal failure [None]
  - Tinnitus [None]
  - Palpitations [None]
  - Drug ineffective [None]
  - Dizziness [None]
